FAERS Safety Report 7201315-4 (Version None)
Quarter: 2010Q4

REPORT INFORMATION
  Report Type: 
  Country: None (occurrence: None)
  Receive Date: 20101227
  Receipt Date: 20101227
  Transmission Date: 20110411
  Serious: Yes (Other)
  Sender: FDA-Public Use
  Company Number: None

PATIENT
  Age: 78 Year
  Sex: Male
  Weight: 79.8331 kg

DRUGS (2)
  1. VYTORIN [Suspect]
     Indication: CARDIOVASCULAR EVENT PROPHYLAXIS
     Dosage: 1 IN PM
     Dates: start: 20081119, end: 20101208
  2. LIPITOR [Suspect]
     Indication: CARDIOVASCULAR EVENT PROPHYLAXIS
     Dosage: 1 IN PM
     Dates: start: 20071101, end: 20081118

REACTIONS (4)
  - AGGRESSION [None]
  - COGNITIVE DISORDER [None]
  - DEMENTIA ALZHEIMER'S TYPE [None]
  - MEMORY IMPAIRMENT [None]
